FAERS Safety Report 9253371 (Version 1)
Quarter: 2013Q2

REPORT INFORMATION
  Report Type: Spontaneous
  Country: US (occurrence: US)
  Receive Date: 20130425
  Receipt Date: 20130425
  Transmission Date: 20140414
  Serious: Yes (Hospitalization, Other)
  Sender: FDA-Public Use
  Company Number: US-AMGEN-USASP2013028121

PATIENT
  Age: 46 Year
  Sex: Female

DRUGS (4)
  1. ENBREL [Suspect]
     Indication: RHEUMATOID ARTHRITIS
     Dosage: 50 MG, QWK
     Dates: start: 20031201
  2. LEFLUNOMIDE [Concomitant]
     Dosage: 20 MG, QD
  3. PREDNISONE [Concomitant]
     Dosage: UNK
     Dates: start: 2012, end: 2012
  4. METHOTREXATE [Concomitant]
     Dosage: UNK
     Dates: end: 2012

REACTIONS (8)
  - Joint injury [Recovered/Resolved]
  - Joint destruction [Recovered/Resolved]
  - Road traffic accident [Recovered/Resolved]
  - Gait disturbance [Not Recovered/Not Resolved]
  - Neck pain [Recovered/Resolved]
  - Pain in extremity [Recovered/Resolved]
  - Respiratory tract infection [Recovered/Resolved]
  - Influenza [Recovered/Resolved]
